FAERS Safety Report 10017429 (Version 1)
Quarter: 2014Q1

REPORT INFORMATION
  Report Type: Spontaneous
  Country: US (occurrence: US)
  Receive Date: 20140318
  Receipt Date: 20140318
  Transmission Date: 20141002
  Serious: No
  Sender: FDA-Public Use
  Company Number: US-PFIZER INC-2014076564

PATIENT
  Age: 64 Year
  Sex: Female
  Weight: 87.08 kg

DRUGS (2)
  1. CELEBREX [Suspect]
     Indication: OSTEOARTHRITIS
     Dosage: UNK, 2X/DAY
  2. TOPROL [Concomitant]
     Dosage: 50 MG, 1X/DAY

REACTIONS (2)
  - Neck pain [Unknown]
  - Drug ineffective [Unknown]
